FAERS Safety Report 8344137-3 (Version None)
Quarter: 2012Q2

REPORT INFORMATION
  Report Type: 
  Country: None (occurrence: None)
  Receive Date: 20120508
  Receipt Date: 20120503
  Transmission Date: 20120825
  Serious: Yes (Other)
  Sender: FDA-Public Use
  Company Number: PHFR2011GB02869

PATIENT
  Sex: Male

DRUGS (2)
  1. CLOZARIL [Suspect]
     Indication: SCHIZOPHRENIA
     Dosage: 350 MG/DAY
     Route: 048
     Dates: start: 20110324, end: 20110503
  2. CLOZARIL [Suspect]
     Route: 048
     Dates: start: 20120322, end: 20120329

REACTIONS (9)
  - WEIGHT DECREASED [None]
  - ABDOMINAL PAIN UPPER [None]
  - DIARRHOEA [None]
  - BODY TEMPERATURE FLUCTUATION [None]
  - DIFFERENTIAL WHITE BLOOD CELL COUNT ABNORMAL [None]
  - RED BLOOD CELL SEDIMENTATION RATE INCREASED [None]
  - CONSTIPATION [None]
  - ABNORMAL FAECES [None]
  - ABDOMINAL DISCOMFORT [None]
